FAERS Safety Report 6196974-1 (Version None)
Quarter: 2009Q2

REPORT INFORMATION
  Report Type: 
  Country: None (occurrence: None)
  Receive Date: 20090520
  Receipt Date: 20090513
  Transmission Date: 20091009
  Serious: Yes (Hospitalization, Other)
  Sender: FDA-Public Use
  Company Number: PHHY2009DE16849

PATIENT
  Age: 72 Year
  Sex: Female

DRUGS (1)
  1. ESTRAGEST TTS [Suspect]
     Indication: OSTEOPOROSIS PROPHYLAXIS
     Dosage: UNK
     Route: 062

REACTIONS (5)
  - BLOOD CHOLESTEROL INCREASED [None]
  - CHOLELITHIASIS [None]
  - CHOLELITHOTOMY [None]
  - HEPATIC STEATOSIS [None]
  - LIVER SCAN ABNORMAL [None]
